FAERS Safety Report 7559607-5 (Version None)
Quarter: 2011Q2

REPORT INFORMATION
  Report Type: 
  Country: None (occurrence: None)
  Receive Date: 20110617
  Receipt Date: 20110617
  Transmission Date: 20111010
  Serious: Yes (Life-Threatening, Other)
  Sender: FDA-Public Use
  Company Number: None

PATIENT
  Age: 31 Year
  Sex: Male
  Weight: 64.8644 kg

DRUGS (1)
  1. DOXYCYCLINE HYCLATE [Suspect]

REACTIONS (2)
  - HEADACHE [None]
  - NAUSEA [None]
